FAERS Safety Report 7385734-1 (Version None)
Quarter: 2011Q1

REPORT INFORMATION
  Report Type: 
  Country: None (occurrence: None)
  Receive Date: 20110331
  Receipt Date: 20101011
  Transmission Date: 20110831
  Serious: Yes (Hospitalization, Other)
  Sender: FDA-Public Use
  Company Number: US-BAYER-200941465NA

PATIENT
  Sex: Female
  Weight: 54.545 kg

DRUGS (19)
  1. YASMIN [Suspect]
     Indication: MENORRHAGIA
  2. PREDNISONE [Concomitant]
  3. PAXIL [Concomitant]
  4. TRIAMCINOLONE [Concomitant]
     Indication: PRODUCT USED FOR UNKNOWN INDICATION
     Route: 065
     Dates: start: 20090713
  5. DEMEROL [Concomitant]
     Route: 042
  6. ZOLPIDEM [Concomitant]
  7. ZYRTEC-D 12 HOUR [Concomitant]
  8. HYOSCYAMINE [Concomitant]
     Indication: PAIN
  9. HYOMAX-SL [Concomitant]
     Route: 065
     Dates: start: 20090709
  10. HYOSCYAMINE [Concomitant]
     Indication: PRODUCT USED FOR UNKNOWN INDICATION
     Dates: start: 20090709
  11. PROAIR HFA [Concomitant]
     Route: 055
     Dates: start: 20090810
  12. PAROXETINE HCL [Concomitant]
     Dosage: 30 MG, QD
  13. XANAX [Concomitant]
     Dosage: 0.25 MG, UNK
  14. OCELLA [Suspect]
     Indication: ABDOMINAL PAIN
     Dosage: UNK
     Route: 065
     Dates: start: 20081001, end: 20091001
  15. ADVAIR DISKUS 100/50 [Concomitant]
     Indication: PRODUCT USED FOR UNKNOWN INDICATION
     Dosage: 500/50 DISKUS
     Route: 065
     Dates: start: 20090527
  16. SINGULAIR [Concomitant]
     Indication: PRODUCT USED FOR UNKNOWN INDICATION
     Dosage: 10 MG, QD
     Route: 065
     Dates: start: 20090525
  17. ALBUTEROL SULFATE [Concomitant]
     Indication: PRODUCT USED FOR UNKNOWN INDICATION
     Route: 055
     Dates: start: 20090810
  18. MORPHINE [Concomitant]
  19. YASMIN [Suspect]
     Indication: ABDOMINAL PAIN
     Dosage: UNK
     Route: 048
     Dates: start: 20070516, end: 20081001

REACTIONS (12)
  - ABDOMINAL PAIN [None]
  - WEIGHT DECREASED [None]
  - GALLBLADDER DISORDER [None]
  - GASTRITIS EROSIVE [None]
  - HIATUS HERNIA [None]
  - NAUSEA [None]
  - GASTROINTESTINAL INJURY [None]
  - CHOLELITHIASIS [None]
  - GASTRITIS [None]
  - BILIARY DYSKINESIA [None]
  - CHOLESTEROSIS [None]
  - HYPOPHAGIA [None]
